FAERS Safety Report 16781524 (Version 2)
Quarter: 2019Q3

REPORT INFORMATION
  Report Type: Spontaneous
  Country: US (occurrence: US)
  Receive Date: 20190906
  Receipt Date: 20190911
  Transmission Date: 20191005
  Serious: Yes (Hospitalization, Other)
  Sender: FDA-Public Use
  Company Number: US-JNJFOC-20190839403

PATIENT
  Sex: Female

DRUGS (2)
  1. SPRAVATO [Suspect]
     Active Substance: ESKETAMINE
     Indication: PRODUCT USED FOR UNKNOWN INDICATION
     Dosage: FIRST THREE DOSE=56 MG
  2. SPRAVATO [Suspect]
     Active Substance: ESKETAMINE
     Dosage: FOURTH DOSE=84 MG
     Dates: start: 20190829

REACTIONS (1)
  - Suicidal ideation [Unknown]
